FAERS Safety Report 7740328-0 (Version None)
Quarter: 2011Q3

REPORT INFORMATION
  Report Type: 
  Country: None (occurrence: None)
  Receive Date: 20110909
  Receipt Date: 20110906
  Transmission Date: 20111222
  Serious: Yes (Hospitalization, Other)
  Sender: FDA-Public Use
  Company Number: JP-PFIZER INC-2011170066

PATIENT
  Age: 79 Year
  Sex: Male
  Weight: 44 kg

DRUGS (15)
  1. MUCOSOLVAN [Concomitant]
     Indication: BRONCHITIS CHRONIC
     Dosage: 15 MG, 3X/DAY
     Route: 048
     Dates: start: 20090722
  2. OMEPRAZOLE [Concomitant]
     Indication: GASTROOESOPHAGEAL REFLUX DISEASE
     Dosage: 10 MG, 1X/DAY
     Route: 048
     Dates: start: 20100424
  3. VALSARTAN [Concomitant]
     Indication: HYPERTENSION
     Dosage: 80 MG, 1X/DAY
     Route: 048
     Dates: start: 20090302
  4. LYRICA [Suspect]
     Indication: LUMBAR SPINAL STENOSIS
     Dosage: 75 MG, 2X/DAY
     Route: 048
     Dates: start: 20110709, end: 20110710
  5. LYRICA [Suspect]
     Dosage: 75 MG, 1X/DAY
     Route: 048
     Dates: start: 20110713, end: 20110719
  6. OPALMON [Concomitant]
     Indication: ARTERIOSCLEROSIS OBLITERANS
     Dosage: 5 UG, 3X/DAY
     Route: 048
     Dates: start: 20090430
  7. METHYCOBAL [Concomitant]
     Indication: HYPOAESTHESIA
  8. PLETAL [Concomitant]
     Indication: ARTERIOSCLEROSIS OBLITERANS
     Dosage: 100 MG, 2X/DAY
     Route: 048
     Dates: start: 20100313
  9. NEUROTROPIN [Concomitant]
     Indication: BACK PAIN
     Dosage: 8 UNITS TWICE DAILY
     Route: 048
     Dates: start: 20110518
  10. LYRICA [Suspect]
     Dosage: 75 MG, 2X/DAY
     Route: 048
     Dates: start: 20110720, end: 20110723
  11. OPALMON [Concomitant]
     Indication: HYPOAESTHESIA
  12. METHYCOBAL [Concomitant]
     Indication: NEURALGIA
     Dosage: 0.5 MG, 3X/DAY
     Route: 048
     Dates: start: 20090430
  13. SELBEX [Concomitant]
     Indication: GASTRITIS
     Dosage: 0.5 G, 3X/DAY
     Route: 048
     Dates: start: 20090302
  14. NEUROTROPIN [Concomitant]
     Indication: HYPOAESTHESIA
  15. CROTAMITON [Concomitant]
     Indication: RASH
     Dosage: ONCE TO TWICE DAILY
     Route: 061
     Dates: start: 20101023

REACTIONS (4)
  - DECREASED APPETITE [None]
  - GAIT DISTURBANCE [None]
  - MUSCULAR WEAKNESS [None]
  - DYSKINESIA [None]
